FAERS Safety Report 6906806-9 (Version None)
Quarter: 2010Q3

REPORT INFORMATION
  Report Type: 
  Country: None (occurrence: None)
  Receive Date: 20100804
  Receipt Date: 20100730
  Transmission Date: 20110219
  Serious: Yes (Life-Threatening, Hospitalization)
  Sender: FDA-Public Use
  Company Number: PHHO2010BR03306

PATIENT
  Sex: Male
  Weight: 68 kg

DRUGS (12)
  1. BLINDED ALISKIREN ALI+TAB+CF [Suspect]
     Dosage: CODE NOT BROKEN
     Route: 048
     Dates: start: 20100125, end: 20100220
  2. BLINDED ENALAPRIL COMP-ENA+ [Suspect]
     Dosage: CODE NOT BROKEN
     Route: 048
     Dates: start: 20100125, end: 20100220
  3. BLINDED NO TREATMENT RECEIVED NOMED [Suspect]
     Dosage: CODE NOT BROKEN
     Route: 048
     Dates: start: 20100125, end: 20100220
  4. ALISKIREN [Suspect]
     Indication: CARDIAC FAILURE
     Dosage: UNK
     Route: 048
     Dates: start: 20091028
  5. COMPARATOR ENALAPRIL [Suspect]
     Indication: CARDIAC FAILURE
     Dosage: UNK
     Route: 048
     Dates: start: 20091028
  6. SIMVASTATIN [Concomitant]
     Indication: CARDIAC FAILURE
  7. CAPTOPRIL [Concomitant]
     Indication: CARDIAC FAILURE
  8. CARVEDILOL [Concomitant]
  9. DIGOXIN [Concomitant]
     Indication: CARDIAC FAILURE
  10. EZETIMIBE [Concomitant]
     Indication: CARDIAC FAILURE
  11. ASPIRIN [Concomitant]
  12. SPIRONOLACTONE [Concomitant]
     Indication: CARDIAC FAILURE
     Dosage: UNK
     Dates: start: 20091002, end: 20100220

REACTIONS (7)
  - ARRHYTHMIA [None]
  - BLINDNESS UNILATERAL [None]
  - CEREBROVASCULAR ACCIDENT [None]
  - DISEASE PROGRESSION [None]
  - HAEMOLYSIS [None]
  - HYPERKALAEMIA [None]
  - ISCHAEMIC STROKE [None]
